FAERS Safety Report 22885413 (Version 4)
Quarter: 2023Q4

REPORT INFORMATION
  Report Type: Spontaneous
  Country: JP (occurrence: JP)
  Receive Date: 20230831
  Receipt Date: 20231213
  Transmission Date: 20240109
  Serious: Yes (Other)
  Sender: FDA-Public Use
  Company Number: JP-BRISTOL-MYERS SQUIBB COMPANY-2023-120489

PATIENT
  Age: 73 Year
  Sex: Male

DRUGS (8)
  1. YERVOY [Suspect]
     Active Substance: IPILIMUMAB
     Indication: Oesophageal carcinoma recurrent
     Route: 041
     Dates: start: 20230220
  2. OPDIVO [Suspect]
     Active Substance: NIVOLUMAB
     Indication: Oesophageal carcinoma recurrent
     Dates: start: 20230220
  3. FLUOROURACIL [Concomitant]
     Active Substance: FLUOROURACIL
     Indication: Oesophageal carcinoma recurrent
     Dates: start: 20230403
  4. FLUOROURACIL [Concomitant]
     Active Substance: FLUOROURACIL
     Dates: start: 20230420
  5. LEVOLEUCOVORIN CALCIUM [Concomitant]
     Active Substance: LEVOLEUCOVORIN CALCIUM
     Indication: Oesophageal carcinoma recurrent
     Dates: start: 20230403
  6. LEVOLEUCOVORIN CALCIUM [Concomitant]
     Active Substance: LEVOLEUCOVORIN CALCIUM
     Dates: start: 20230420
  7. OXALIPLATIN [Concomitant]
     Active Substance: OXALIPLATIN
     Indication: Oesophageal carcinoma recurrent
     Dates: start: 20230403
  8. OXALIPLATIN [Concomitant]
     Active Substance: OXALIPLATIN
     Dates: start: 20230420

REACTIONS (8)
  - Paralysis recurrent laryngeal nerve [Unknown]
  - Pneumonia aspiration [Unknown]
  - Malignant neoplasm progression [Unknown]
  - Neutrophil count abnormal [Unknown]
  - Resorption bone increased [Unknown]
  - Pulmonary mass [Unknown]
  - Lung abscess [Unknown]
  - Oesophageal cancer metastatic [Unknown]

NARRATIVE: CASE EVENT DATE: 20230306
